FAERS Safety Report 9517571 (Version 2)
Quarter: 2013Q3

REPORT INFORMATION
  Report Type: Report from Study
  Country: US (occurrence: US)
  Receive Date: 20130911
  Receipt Date: 20130923
  Transmission Date: 20140515
  Serious: Yes (Other)
  Sender: FDA-Public Use
  Company Number: US-009507513-1309USA004407

PATIENT
  Age: 72 Year
  Sex: Male
  Weight: 123 kg

DRUGS (13)
  1. MK-3475 [Suspect]
     Indication: MALIGNANT MELANOMA
     Dosage: 1226 MG, IN SERIE 5
     Route: 042
     Dates: start: 20130520, end: 20130520
  2. MK-9379 [Suspect]
     Dosage: 25 MG DAILY
     Route: 048
     Dates: start: 20111214
  3. FUROSEMIDE [Suspect]
     Dosage: 40 MG DAILY
     Route: 048
     Dates: start: 20111214
  4. LISINOPRIL [Concomitant]
     Dosage: 20 MG DAILY
     Route: 048
     Dates: start: 20111214
  5. METFORMIN [Concomitant]
     Dosage: 500 MG DAILY
     Route: 048
     Dates: start: 20111214
  6. NOVOLOG [Concomitant]
     Dosage: UNK
     Dates: start: 20111214
  7. ASPIRIN [Concomitant]
     Dosage: 325 MG DAILY
     Route: 048
     Dates: start: 20111214
  8. CARVEDILOL [Concomitant]
     Dosage: 3.125 MG, BID
     Route: 048
     Dates: start: 20130321
  9. GABAPENTIN [Concomitant]
     Dosage: 300 MG, TID
     Route: 048
     Dates: start: 20111214
  10. LANTUS [Concomitant]
     Dosage: 44 UNITES DAILY
     Route: 058
     Dates: start: 20111231
  11. LOTRIMIN AF [Concomitant]
     Indication: ERYTHEMA
     Dosage: UNK, BID
     Route: 061
  12. LOTRIMIN AF [Concomitant]
     Indication: PRURITUS
  13. ACETAMINOPHEN [Concomitant]
     Dosage: UNK
     Dates: start: 20130520

REACTIONS (1)
  - Hyperuricaemia [Unknown]
